FAERS Safety Report 11402018 (Version 1)
Quarter: 2015Q3

REPORT INFORMATION
  Report Type: Spontaneous
  Country: US (occurrence: US)
  Receive Date: 20150821
  Receipt Date: 20150821
  Transmission Date: 20151125
  Serious: No
  Sender: FDA-Public Use
  Company Number: US-ROCHE-1329948

PATIENT
  Sex: Female

DRUGS (2)
  1. RIBAVIRIN. [Suspect]
     Active Substance: RIBAVIRIN
     Indication: CHRONIC HEPATITIS C
     Dosage: DIVIDED DOSES 400/400 MG
     Route: 065
     Dates: start: 20140101
  2. PEGASYS [Suspect]
     Active Substance: PEGINTERFERON ALFA-2A
     Indication: CHRONIC HEPATITIS C
     Route: 065
     Dates: start: 20140101

REACTIONS (8)
  - Fatigue [Unknown]
  - Arthralgia [Unknown]
  - Hyperhidrosis [Unknown]
  - Rash [Unknown]
  - Insomnia [Unknown]
  - Nausea [Recovering/Resolving]
  - Feeling hot [Unknown]
  - Malaise [Unknown]
